FAERS Safety Report 6138666-0 (Version None)
Quarter: 2009Q1

REPORT INFORMATION
  Report Type: 
  Country: None (occurrence: None)
  Receive Date: 20090331
  Receipt Date: 20090321
  Transmission Date: 20090719
  Serious: Yes (Hospitalization)
  Sender: FDA-Public Use
  Company Number: PHHY2009GB11200

PATIENT
  Sex: Male

DRUGS (1)
  1. CLOZARIL [Suspect]
     Indication: SCHIZOPHRENIA
     Dosage: 100 MG MANE, 225 MG NOCTE
     Dates: start: 20090227

REACTIONS (7)
  - ABASIA [None]
  - ASTHENIA [None]
  - CONVULSION [None]
  - DEPRESSED LEVEL OF CONSCIOUSNESS [None]
  - PYREXIA [None]
  - SEDATION [None]
  - TREATMENT NONCOMPLIANCE [None]
